FAERS Safety Report 8558618-0 (Version None)
Quarter: 2012Q3

REPORT INFORMATION
  Report Type: 
  Country: None (occurrence: None)
  Receive Date: 20120801
  Receipt Date: 20120724
  Transmission Date: 20120928
  Serious: Yes (Other)
  Sender: FDA-Public Use
  Company Number: US-ROCHE-1084775

PATIENT
  Sex: Male

DRUGS (2)
  1. ALTEPLASE [Suspect]
     Indication: SUPERIOR SAGITTAL SINUS THROMBOSIS
     Route: 040
  2. HEPARIN [Suspect]
     Indication: SUPERIOR SAGITTAL SINUS THROMBOSIS
     Route: 042

REACTIONS (9)
  - NEUROLOGICAL DECOMPENSATION [None]
  - INTRACRANIAL VENOUS SINUS THROMBOSIS [None]
  - HEADACHE [None]
  - INTRACRANIAL PRESSURE INCREASED [None]
  - CEREBRAL HAEMORRHAGE [None]
  - CEREBRAL INFARCTION [None]
  - CEREBRAL VENTRICLE DILATATION [None]
  - HEMIPARESIS [None]
  - SUBDURAL HAEMORRHAGE [None]
